FAERS Safety Report 9467182 (Version 3)
Quarter: 2015Q1

REPORT INFORMATION
  Report Type: Report from Study
  Country: GB (occurrence: GB)
  Receive Date: 20130821
  Receipt Date: 20150312
  Transmission Date: 20150721
  Serious: Yes (Death, Hospitalization, Other)
  Sender: FDA-Public Use
  Company Number: GB-ROCHE-1262967

PATIENT
  Age: 60 Year
  Sex: Female
  Weight: 57 kg

DRUGS (1)
  1. RITUXIMAB [Suspect]
     Active Substance: RITUXIMAB
     Indication: RHEUMATOID ARTHRITIS
     Route: 065
     Dates: start: 20110106

REACTIONS (9)
  - Aortic stenosis [Unknown]
  - Acute respiratory failure [Unknown]
  - Infective exacerbation of chronic obstructive airways disease [Unknown]
  - Lower respiratory tract infection [Unknown]
  - Hallucination, visual [Unknown]
  - Chronic obstructive pulmonary disease [Fatal]
  - Parotitis [Unknown]
  - Arthritis bacterial [Recovered/Resolved with Sequelae]
  - Hyponatraemia [Unknown]

NARRATIVE: CASE EVENT DATE: 20110218
